FAERS Safety Report 22610025 (Version 1)
Quarter: 2023Q2

REPORT INFORMATION
  Report Type: Spontaneous
  Country: US (occurrence: US)
  Receive Date: 20230616
  Receipt Date: 20230616
  Transmission Date: 20230722
  Serious: No
  Sender: FDA-Public Use
  Company Number: US-BEH-2023159815

PATIENT
  Sex: Female

DRUGS (20)
  1. HIZENTRA [Suspect]
     Active Substance: HUMAN IMMUNOGLOBULIN G
     Indication: Immunodeficiency common variable
     Dosage: 8 GRAM, QW
     Route: 058
     Dates: start: 20230516
  2. AIMOVIG [Concomitant]
     Active Substance: ERENUMAB-AOOE
  3. ALBUTEROL [Concomitant]
     Active Substance: ALBUTEROL
  4. BETAMETHASONE DIPROPIONATE [Concomitant]
     Active Substance: BETAMETHASONE DIPROPIONATE
  5. BIMATOPROST [Concomitant]
     Active Substance: BIMATOPROST
  6. BIOTIN [Concomitant]
     Active Substance: BIOTIN
  7. CLOBETASOL [Concomitant]
     Active Substance: CLOBETASOL
  8. EPINEPHRINE [Concomitant]
     Active Substance: EPINEPHRINE
  9. FLUCONAZOLE [Concomitant]
     Active Substance: FLUCONAZOLE
  10. FLUOCINOLONE ACETONIDE [Concomitant]
     Active Substance: FLUOCINOLONE ACETONIDE
  11. FLUTICASONE FUROATE\SALMETEROL XINAFOATE [Concomitant]
     Active Substance: FLUTICASONE FUROATE\SALMETEROL XINAFOATE
  12. HYDROCORTISONE [Concomitant]
     Active Substance: HYDROCORTISONE
  13. LIDOCAINE\PRILOCAINE [Concomitant]
     Active Substance: LIDOCAINE\PRILOCAINE
  14. METHYLPREDNISOLONE [Concomitant]
     Active Substance: METHYLPREDNISOLONE
  15. PREDNISONE [Concomitant]
     Active Substance: PREDNISONE
  16. PROCTO-METADYNE [Concomitant]
  17. RESTASIS [Concomitant]
     Active Substance: CYCLOSPORINE
  18. TACROLIMUS [Concomitant]
     Active Substance: TACROLIMUS
  19. TERCONAZOLE [Concomitant]
     Active Substance: TERCONAZOLE
  20. TERCONAZOLE [Concomitant]
     Active Substance: TERCONAZOLE

REACTIONS (2)
  - Headache [Not Recovered/Not Resolved]
  - Infusion site swelling [Not Recovered/Not Resolved]
